FAERS Safety Report 9343394 (Version 1)
Quarter: 2013Q2

REPORT INFORMATION
  Report Type: Spontaneous
  Country: US (occurrence: US)
  Receive Date: 20130612
  Receipt Date: 20130612
  Transmission Date: 20140414
  Serious: Yes (Other)
  Sender: FDA-Public Use
  Company Number: US-GE HEALTHCARE MEDICAL DIAGNOSTICS-OMPQ-PR-1306S-0719

PATIENT
  Age: 64 Year
  Sex: Female
  Weight: 83.99 kg

DRUGS (7)
  1. OMNIPAQUE [Suspect]
     Indication: PARAESTHESIA
     Route: 042
     Dates: start: 20130605, end: 20130605
  2. OMNIPAQUE [Suspect]
     Indication: DIAGNOSTIC PROCEDURE
  3. VITAMIN D [Concomitant]
  4. ASA [Concomitant]
  5. IRON [Concomitant]
  6. OMEPRAZOLE [Concomitant]
  7. POTASSIUM [Concomitant]

REACTIONS (2)
  - Throat irritation [Unknown]
  - Nasal congestion [Unknown]
